FAERS Safety Report 15532943 (Version 1)
Quarter: 2018Q4

REPORT INFORMATION
  Report Type: Spontaneous
  Country: RO (occurrence: RO)
  Receive Date: 20181019
  Receipt Date: 20181019
  Transmission Date: 20190205
  Serious: Yes (Other)
  Sender: FDA-Public Use
  Company Number: IND-RO-009507513-1810ROM008362

PATIENT
  Age: 65 Year
  Sex: Female

DRUGS (1)
  1. ARCOXIA [Suspect]
     Active Substance: ETORICOXIB
     Indication: ARTHRITIS
     Dosage: UNK
     Route: 048
     Dates: start: 2018, end: 2018

REACTIONS (2)
  - Respiratory failure [Recovered/Resolved]
  - Asthma [Unknown]

NARRATIVE: CASE EVENT DATE: 2018
